FAERS Safety Report 25109231 (Version 1)
Quarter: 2025Q1

REPORT INFORMATION
  Report Type: Spontaneous
  Country: US (occurrence: US)
  Receive Date: 20250323
  Receipt Date: 20250323
  Transmission Date: 20250409
  Serious: Yes (Other)
  Sender: GLENMARK
  Company Number: US-MLMSERVICE-20250303-PI434634-00250-1

PATIENT
  Age: 26 Year
  Sex: Male

DRUGS (11)
  1. LITHIUM [Suspect]
     Active Substance: LITHIUM
     Indication: Affective disorder
     Dosage: 300 MILLIGRAM, BID (TWICE A DAY (BID) DOSE, (300-1200 PER DAY) TITRATED UP WITH LITTLE EFFECT)
     Route: 048
  2. LITHIUM [Suspect]
     Active Substance: LITHIUM
     Dosage: 600 MILLIGRAM, BID
     Route: 048
  3. OXCARBAZEPINE [Suspect]
     Active Substance: OXCARBAZEPINE
     Indication: Affective disorder
     Dosage: 150 MILLIGRAM, BID, 300 MILLIGRAM PER DAY
     Route: 048
  4. LORAZEPAM [Concomitant]
     Active Substance: LORAZEPAM
     Indication: Product used for unknown indication
     Dosage: 5 MILLIGRAM, QD ((2?MG PO QAM AND 3?MG PO QHS))
     Route: 048
  5. CLONAZEPAM [Concomitant]
     Active Substance: CLONAZEPAM
     Indication: Aggression
     Dosage: 0.5 MILLIGRAM, BID
     Route: 048
  6. CLONAZEPAM [Concomitant]
     Active Substance: CLONAZEPAM
     Dosage: 1.5 MILLIGRAM, TID
     Route: 048
  7. CLONAZEPAM [Concomitant]
     Active Substance: CLONAZEPAM
     Dosage: 3.5 MILLIGRAM, QD, DOSE DECREASED TO 1 MG PO IN THE MORNING (QAM) AND 2.5 MG PO AT NIGHT (QHS)
     Route: 048
  8. PALIPERIDONE [Concomitant]
     Active Substance: PALIPERIDONE
     Indication: Psychotic disorder
     Dosage: 3-12 MILLIGRAM PER DAY
     Route: 048
  9. PALIPERIDONE [Concomitant]
     Active Substance: PALIPERIDONE
     Dosage: 3-12 MILLIGRAM PER DAY
     Route: 048
  10. PALIPERIDONE [Concomitant]
     Active Substance: PALIPERIDONE
     Dosage: 3-12 MILLIGRAM PER DAY
     Route: 048
  11. OLANZAPINE [Concomitant]
     Active Substance: OLANZAPINE
     Indication: Antipsychotic therapy
     Route: 065

REACTIONS (5)
  - Leukopenia [Unknown]
  - Acute kidney injury [Unknown]
  - Psychiatric decompensation [Unknown]
  - Antipsychotic drug level decreased [Unknown]
  - Product dose omission issue [Unknown]
